FAERS Safety Report 18233974 (Version 2)
Quarter: 2020Q3

REPORT INFORMATION
  Report Type: Spontaneous
  Country: SI (occurrence: SI)
  Receive Date: 20200904
  Receipt Date: 20200919
  Transmission Date: 20201103
  Serious: Yes (Death, Hospitalization)
  Sender: FDA-Public Use
  Company Number: SI-SERVIER-S20008674

PATIENT

DRUGS (4)
  1. ONCASPAR [Suspect]
     Active Substance: PEGASPARGASE
     Indication: ACUTE LYMPHOCYTIC LEUKAEMIA
     Dosage: 1800 IU
     Route: 042
     Dates: start: 20190911, end: 20190911
  2. ONCASPAR [Suspect]
     Active Substance: PEGASPARGASE
     Dosage: 1800 IU
     Route: 042
     Dates: start: 20190925, end: 20190925
  3. ARA?CELL [Concomitant]
     Active Substance: CYTARABINE
     Indication: ACUTE LYMPHOCYTIC LEUKAEMIA
     Route: 065
  4. PURINETHOL [Concomitant]
     Active Substance: MERCAPTOPURINE
     Indication: ACUTE LYMPHOCYTIC LEUKAEMIA
     Route: 048

REACTIONS (14)
  - Headache [Unknown]
  - Gamma-glutamyltransferase increased [Unknown]
  - Pleural effusion [Unknown]
  - Blood albumin decreased [Unknown]
  - Ascites [Unknown]
  - Aspartate aminotransferase increased [Unknown]
  - Pancreatitis [Fatal]
  - Haemorrhage [Unknown]
  - Coagulopathy [Unknown]
  - Anuria [Unknown]
  - Abdominal pain [Unknown]
  - Alanine aminotransferase increased [Unknown]
  - Respiratory failure [Unknown]
  - Blood bilirubin increased [Unknown]

NARRATIVE: CASE EVENT DATE: 20191004
